FAERS Safety Report 6683943-8 (Version None)
Quarter: 2010Q2

REPORT INFORMATION
  Report Type: 
  Country: None (occurrence: None)
  Receive Date: 20100416
  Receipt Date: 20100406
  Transmission Date: 20101027
  Serious: Yes (Hospitalization)
  Sender: FDA-Public Use
  Company Number: ES-PFIZER INC-2010043571

PATIENT
  Age: 68 Year
  Sex: Female

DRUGS (4)
  1. CARDURA [Suspect]
     Indication: PHAEOCHROMOCYTOMA
     Dosage: UNK MG, 2X/DAY
     Route: 048
     Dates: start: 20100121, end: 20100125
  2. TENORMIN [Interacting]
     Indication: PHAEOCHROMOCYTOMA
     Dosage: 50 MG, 1X/DAY
     Route: 048
     Dates: start: 20100121, end: 20100125
  3. LORAZEPAM [Concomitant]
     Indication: ANXIETY
     Dosage: 1 MG, 1X/DAY
     Dates: start: 20100101
  4. CONDROSULF [Concomitant]

REACTIONS (2)
  - DRUG INTERACTION [None]
  - SYNCOPE [None]
